FAERS Safety Report 4603080-3 (Version None)
Quarter: 2005Q1

REPORT INFORMATION
  Report Type: 
  Country: None (occurrence: None)
  Receive Date: 20050214
  Receipt Date: 20041203
  Transmission Date: 20050727
  Serious: No
  Sender: FDA-Public Use
  Company Number: USA041285274

PATIENT
  Sex: Male

DRUGS (4)
  1. CIALIS [Suspect]
     Dosage: 20 MG DAY
  2. WELLBUTRIN [Concomitant]
  3. CLONAZEPAM [Concomitant]
  4. EFFEXOR [Concomitant]

REACTIONS (1)
  - THERAPEUTIC RESPONSE DECREASED [None]
